FAERS Safety Report 18864054 (Version 1)
Quarter: 2021Q1

REPORT INFORMATION
  Report Type: Other
  Country: US (occurrence: US)
  Receive Date: 20210209
  Receipt Date: 20210209
  Transmission Date: 20210420
  Serious: Yes (Hospitalization, Other)
  Sender: FDA-Public Use
  Company Number: US-COREPHARMA LLC-2106517

PATIENT
  Age: 21 Year
  Sex: Female

DRUGS (6)
  1. PALIPERIDONE. [Suspect]
     Active Substance: PALIPERIDONE
     Route: 065
  2. TOPIRAMATE. [Suspect]
     Active Substance: TOPIRAMATE
     Route: 065
  3. NAPROXEN. [Suspect]
     Active Substance: NAPROXEN
     Route: 065
  4. CARIPRAZINE [Suspect]
     Active Substance: CARIPRAZINE
     Route: 065
  5. SUMATRIPTAN. [Suspect]
     Active Substance: SUMATRIPTAN
     Indication: PRODUCT USED FOR UNKNOWN INDICATION
     Route: 065
  6. MIRTAZAPINE. [Suspect]
     Active Substance: MIRTAZAPINE
     Route: 065

REACTIONS (6)
  - Sinus tachycardia [Unknown]
  - Overdose [Unknown]
  - Palpitations [Unknown]
  - Musculoskeletal chest pain [Unknown]
  - Suicide attempt [Unknown]
  - Chest pain [Unknown]
